FAERS Safety Report 7965395-0 (Version None)
Quarter: 2011Q4

REPORT INFORMATION
  Report Type: 
  Country: None (occurrence: None)
  Receive Date: 20111208
  Receipt Date: 20111125
  Transmission Date: 20120403
  Serious: Yes (Death, Hospitalization)
  Sender: FDA-Public Use
  Company Number: KR-ACTELION-A-CH2011-57559

PATIENT
  Sex: Female
  Weight: 48 kg

DRUGS (1)
  1. TRACLEER [Suspect]
     Indication: PULMONARY ARTERIAL HYPERTENSION
     Dosage: 125 MG, BID
     Route: 048
     Dates: start: 20091116, end: 20110427

REACTIONS (10)
  - CONDITION AGGRAVATED [None]
  - NAUSEA [None]
  - BLOOD PRESSURE DECREASED [None]
  - INFECTION [None]
  - DIARRHOEA [None]
  - HYPOXIA [None]
  - PULMONARY ARTERIAL HYPERTENSION [None]
  - VOMITING [None]
  - RIGHT VENTRICULAR FAILURE [None]
  - BLOOD GASES ABNORMAL [None]
